FAERS Safety Report 7879875-X (Version None)
Quarter: 2011Q4

REPORT INFORMATION
  Report Type: 
  Country: None (occurrence: None)
  Receive Date: 20111101
  Receipt Date: 20111021
  Transmission Date: 20120403
  Serious: Yes (Other)
  Sender: FDA-Public Use
  Company Number: JP-ROCHE-GNE324556

PATIENT
  Sex: Male

DRUGS (9)
  1. LUCENTIS [Suspect]
     Route: 050
     Dates: start: 20110601
  2. VIGAMOX [Concomitant]
     Dates: start: 20101201, end: 20110401
  3. LUCENTIS [Suspect]
     Indication: AGE-RELATED MACULAR DEGENERATION
     Route: 050
     Dates: start: 20101208
  4. LEVOFLOXACIN [Concomitant]
     Dates: start: 20110601, end: 20110801
  5. LUCENTIS [Suspect]
     Route: 050
     Dates: start: 20110425
  6. LUCENTIS [Suspect]
     Route: 050
     Dates: start: 20110803
  7. LUCENTIS [Suspect]
     Route: 050
     Dates: start: 20110112
  8. LUCENTIS [Suspect]
     Route: 050
     Dates: start: 20110216
  9. WARFARIN [Concomitant]
     Indication: PRODUCT USED FOR UNKNOWN INDICATION

REACTIONS (1)
  - CEREBRAL INFARCTION [None]
